FAERS Safety Report 7736868-0 (Version None)
Quarter: 2011Q3

REPORT INFORMATION
  Report Type: 
  Country: None (occurrence: None)
  Receive Date: 20110908
  Receipt Date: 20110830
  Transmission Date: 20111222
  Serious: Yes (Hospitalization)
  Sender: FDA-Public Use
  Company Number: PHFR2011GB04324

PATIENT
  Sex: Female

DRUGS (1)
  1. CLOZAPINE [Suspect]
     Indication: SCHIZOPHRENIA
     Route: 048
     Dates: start: 20000127, end: 20110716

REACTIONS (3)
  - GENERAL PHYSICAL CONDITION ABNORMAL [None]
  - LOWER RESPIRATORY TRACT INFECTION [None]
  - MENTAL IMPAIRMENT [None]
